FAERS Safety Report 24741827 (Version 1)
Quarter: 2024Q4

REPORT INFORMATION
  Report Type: Spontaneous
  Country: US (occurrence: US)
  Receive Date: 20241217
  Receipt Date: 20241217
  Transmission Date: 20250115
  Serious: No
  Sender: ALVOGEN
  Company Number: US-BMS-IMIDS-REMS_SI-12125623

PATIENT
  Sex: Female

DRUGS (2)
  1. LENALIDOMIDE [Suspect]
     Active Substance: LENALIDOMIDE
     Indication: Plasma cell myeloma
     Dosage: PILL DESCRIPTION: OVAL SHAPED WHITE CAPSULE 25 MG.
     Dates: start: 202408
  2. LENALIDOMIDE [Suspect]
     Active Substance: LENALIDOMIDE
     Indication: Plasma cell myeloma
     Dosage: EXP DATE: 30NOV2025?OVAL SHAPED WHITE CAPSULE 25 MG
     Dates: start: 20241114

REACTIONS (1)
  - Pruritus [Unknown]
